FAERS Safety Report 7860437-5 (Version None)
Quarter: 2011Q4

REPORT INFORMATION
  Report Type: 
  Country: None (occurrence: None)
  Receive Date: 20111026
  Receipt Date: 20111018
  Transmission Date: 20120403
  Serious: Yes (Other)
  Sender: FDA-Public Use
  Company Number: CIP-2011-00853

PATIENT
  Age: 4 Day
  Sex: Male

DRUGS (1)
  1. ZIDOVUDINE [Suspect]
     Indication: PROPHYLAXIS AGAINST HIV INFECTION

REACTIONS (5)
  - METABOLIC ACIDOSIS [None]
  - NEUTROPENIA [None]
  - OVERDOSE [None]
  - BLOOD LACTIC ACID INCREASED [None]
  - ASPARTATE AMINOTRANSFERASE INCREASED [None]
